FAERS Safety Report 16250355 (Version 3)
Quarter: 2019Q2

REPORT INFORMATION
  Report Type: Spontaneous
  Country: US (occurrence: US)
  Receive Date: 20190429
  Receipt Date: 20190528
  Transmission Date: 20190711
  Serious: Yes (Hospitalization)
  Sender: FDA-Public Use
  Company Number: US-HIKMA PHARMACEUTICALS USA INC.-US-H14001-19-02696

PATIENT
  Age: 2 Year
  Sex: Female

DRUGS (1)
  1. AMOXICILLIN. [Suspect]
     Active Substance: AMOXICILLIN
     Indication: BETA HAEMOLYTIC STREPTOCOCCAL INFECTION
     Dosage: 400 MG/5 ML
     Route: 048
     Dates: start: 20190218, end: 20190225

REACTIONS (9)
  - Pyrexia [Recovered/Resolved]
  - Periorbital oedema [Recovered/Resolved]
  - Hepatic enzyme increased [Recovered/Resolved]
  - Middle ear effusion [Recovered/Resolved]
  - Rash papular [Recovered/Resolved]
  - Protein urine present [Recovered/Resolved]
  - Peripheral swelling [Recovered/Resolved]
  - Pruritus [Recovered/Resolved]
  - Drug ineffective [Recovered/Resolved]

NARRATIVE: CASE EVENT DATE: 20190222
